FAERS Safety Report 7919614-7 (Version None)
Quarter: 2011Q4

REPORT INFORMATION
  Report Type: 
  Country: None (occurrence: None)
  Receive Date: 20111117
  Receipt Date: 20111107
  Transmission Date: 20120403
  Serious: Yes (Other)
  Sender: FDA-Public Use
  Company Number: CA-JNJFOC-20111104229

PATIENT
  Sex: Female
  Weight: 80 kg

DRUGS (2)
  1. REMICADE [Suspect]
     Indication: COLITIS ULCERATIVE
     Dosage: 30TH INFUSION
     Dates: start: 20111107
  2. REMICADE [Suspect]

REACTIONS (3)
  - VISUAL ACUITY REDUCED [None]
  - EYE INFECTION [None]
  - PHOTOPHOBIA [None]
